FAERS Safety Report 24704604 (Version 2)
Quarter: 2025Q1

REPORT INFORMATION
  Report Type: Spontaneous
  Country: US (occurrence: US)
  Receive Date: 20241206
  Receipt Date: 20250317
  Transmission Date: 20250409
  Serious: No
  Sender: SANOFI AVENTIS
  Company Number: US-SA-2024SA357586

PATIENT
  Age: 55 Year
  Sex: Male

DRUGS (1)
  1. DUPIXENT [Suspect]
     Active Substance: DUPILUMAB
     Indication: Nasal polyps
     Dosage: 300 MG, QOW
     Route: 058

REACTIONS (6)
  - Anosmia [Unknown]
  - Asthma [Unknown]
  - Nasal polyps [Unknown]
  - Condition aggravated [Unknown]
  - Intentional dose omission [Unknown]
  - Product dose omission in error [Unknown]
